FAERS Safety Report 6782996-6 (Version None)
Quarter: 2010Q2

REPORT INFORMATION
  Report Type: 
  Country: None (occurrence: None)
  Receive Date: 20100622
  Receipt Date: 20100611
  Transmission Date: 20101027
  Serious: Yes (Other)
  Sender: FDA-Public Use
  Company Number: US-JNJFOC-20100504106

PATIENT
  Age: 2 Year
  Sex: Male
  Weight: 16.78 kg

DRUGS (2)
  1. CHILDREN'S TYLENOL SUSPENSION [Suspect]
     Indication: RHINORRHOEA
     Route: 048
  2. CHILDREN'S TYLENOL SUSPENSION [Suspect]
     Indication: PYREXIA
     Route: 048

REACTIONS (4)
  - DYSPNOEA [None]
  - EAR INFECTION [None]
  - NASAL CONGESTION [None]
  - PRODUCT QUALITY ISSUE [None]
